FAERS Safety Report 19149318 (Version 1)
Quarter: 2021Q2

REPORT INFORMATION
  Report Type: Spontaneous
  Country: CA (occurrence: CA)
  Receive Date: 20210416
  Receipt Date: 20210416
  Transmission Date: 20210717
  Serious: Yes (Life-Threatening, Other)
  Sender: FDA-Public Use
  Company Number: CA-PFIZER INC-2021382519

PATIENT
  Age: 7 Month
  Sex: Male
  Weight: 8 kg

DRUGS (16)
  1. ETOPOSIDE. [Suspect]
     Active Substance: ETOPOSIDE
     Indication: RHABDOID TUMOUR
     Dosage: 22 MG
     Route: 042
  2. CISPLATIN. [Suspect]
     Active Substance: CISPLATIN
     Indication: RHABDOID TUMOUR
     Dosage: 31 MG
     Route: 042
  3. CLOTRIMAZOLE. [Concomitant]
     Active Substance: CLOTRIMAZOLE
  4. VINCRISTINE SULFATE. [Suspect]
     Active Substance: VINCRISTINE SULFATE
     Indication: RHABDOID TUMOUR
     Dosage: 0.44 MG
     Route: 042
  5. AMLODIPINE [Concomitant]
     Active Substance: AMLODIPINE BESYLATE
  6. FILGRASTIM [Concomitant]
     Active Substance: FILGRASTIM
  7. ZINC. [Concomitant]
     Active Substance: ZINC
  8. CYTARABINE INJECTION [Concomitant]
     Active Substance: CYTARABINE
  9. HYDROCORTISONE. [Concomitant]
     Active Substance: HYDROCORTISONE
  10. MAGNESIUM [Concomitant]
     Active Substance: MAGNESIUM
  11. MEROPENEM. [Concomitant]
     Active Substance: MEROPENEM
  12. ONDANSETRON [Concomitant]
     Active Substance: ONDANSETRON
  13. PENTAMIDINE ISETHIONATE. [Concomitant]
     Active Substance: PENTAMIDINE ISETHIONATE
  14. CYCLOPHOSPHAMIDE. [Suspect]
     Active Substance: CYCLOPHOSPHAMIDE
     Dosage: 530 MG
     Route: 042
  15. DESONIDE. [Concomitant]
     Active Substance: DESONIDE
  16. DIPROSONE [Concomitant]
     Active Substance: BETAMETHASONE DIPROPIONATE

REACTIONS (3)
  - Neutropenia [Recovered/Resolved]
  - Pyrexia [Recovered/Resolved]
  - Aplastic anaemia [Recovered/Resolved]
